FAERS Safety Report 21953349 (Version 2)
Quarter: 2023Q1

REPORT INFORMATION
  Report Type: Spontaneous
  Country: CA (occurrence: CA)
  Receive Date: 20230204
  Receipt Date: 20230209
  Transmission Date: 20230417
  Serious: Yes (Other)
  Sender: FDA-Public Use
  Company Number: CA-CELLTRION INC.-2021CA018562

PATIENT

DRUGS (31)
  1. INFLECTRA [Suspect]
     Active Substance: INFLIXIMAB-DYYB
     Indication: Takayasu^s arteritis
     Dosage: 520 MG (5 MG/KG) 0, 2, 6 THEN EVERY 4 WEEKS
     Route: 042
     Dates: start: 20220117
  2. INFLECTRA [Suspect]
     Active Substance: INFLIXIMAB-DYYB
     Dosage: 520 MG (5 MG/KG) 0, 2, 6 THEN EVERY 4 WEEKS
     Route: 042
     Dates: start: 20220131
  3. INFLECTRA [Suspect]
     Active Substance: INFLIXIMAB-DYYB
     Dosage: 520 MG (5 MG/KG) 0, 2, 6 THEN EVERY 4 WEEKS
     Route: 042
     Dates: start: 20220131
  4. INFLECTRA [Suspect]
     Active Substance: INFLIXIMAB-DYYB
     Dosage: 520 MG (5 MG/KG) 0, 2, 6 THEN EVERY 4 WEEKS
     Route: 042
     Dates: start: 20220322
  5. INFLECTRA [Suspect]
     Active Substance: INFLIXIMAB-DYYB
     Dosage: 520 MG (5 MG/KG) 0, 2, 6 THEN EVERY 4 WEEKS
     Route: 042
     Dates: start: 20220419
  6. INFLECTRA [Suspect]
     Active Substance: INFLIXIMAB-DYYB
     Dosage: 520 MG (5 MG/KG) 0, 2, 6 THEN EVERY 4 WEEKS
     Route: 042
     Dates: start: 20220516
  7. INFLECTRA [Suspect]
     Active Substance: INFLIXIMAB-DYYB
     Dosage: 520 MG (5 MG/KG) 0, 2, 6 THEN EVERY 4 WEEKS
     Route: 042
     Dates: start: 20220613
  8. INFLECTRA [Suspect]
     Active Substance: INFLIXIMAB-DYYB
     Dosage: 520 MG (5 MG/KG) 0, 2, 6 THEN EVERY 4 WEEKS
     Route: 042
     Dates: start: 20220711
  9. INFLECTRA [Suspect]
     Active Substance: INFLIXIMAB-DYYB
     Dosage: 520 MG (5 MG/KG) 0, 2, 6 THEN EVERY 4 WEEKS
     Route: 042
     Dates: start: 20220711
  10. INFLECTRA [Suspect]
     Active Substance: INFLIXIMAB-DYYB
     Dosage: 520 MG (5 MG/KG) 0, 2, 6 THEN EVERY 4 WEEKS
     Route: 042
     Dates: start: 20220811
  11. INFLECTRA [Suspect]
     Active Substance: INFLIXIMAB-DYYB
     Dosage: 520 MG, (5 MG/KG) 0, 2, 6 WEEKS THEN EVERY 4 WEEKS
     Route: 042
     Dates: start: 20220913
  12. INFLECTRA [Suspect]
     Active Substance: INFLIXIMAB-DYYB
     Dosage: 520 MG, Q 4 WEEKS
     Route: 042
     Dates: start: 20221219
  13. INFLECTRA [Suspect]
     Active Substance: INFLIXIMAB-DYYB
     Dosage: 520 MG, Q 4 WEEKS
     Route: 042
     Dates: start: 20221219
  14. INFLECTRA [Suspect]
     Active Substance: INFLIXIMAB-DYYB
     Dosage: 520 MG (5 MG/KG) AT 0, 2, 6 WEEKS THEN EVERY 4 WEEKS
     Route: 042
     Dates: start: 20230127
  15. ACETAMINOPHEN [Concomitant]
     Active Substance: ACETAMINOPHEN
     Indication: Premedication
     Dosage: 325-650 MG; 15-30 MIN PRIOR TO INFUSION
     Route: 048
  16. ACETAMINOPHEN [Concomitant]
     Active Substance: ACETAMINOPHEN
     Dosage: 650 MG
     Route: 048
     Dates: start: 20230127
  17. APIXABAN [Concomitant]
     Active Substance: APIXABAN
     Dosage: 2.5 UNK
  18. BENADRYL [Concomitant]
     Active Substance: DIPHENHYDRAMINE HYDROCHLORIDE
     Indication: Premedication
     Dosage: 50 MG PO  5-30 MIN PRIOR TO INFUSION
     Route: 048
  19. BENADRYL [Concomitant]
     Active Substance: DIPHENHYDRAMINE HYDROCHLORIDE
     Dosage: 50 UNK
     Route: 048
     Dates: start: 20230127
  20. CALCIUM [Concomitant]
     Active Substance: CALCIUM
     Dosage: 500 MG
  21. ALLOPURINOL [Concomitant]
     Active Substance: ALLOPURINOL
     Dosage: 10 MG
  22. GRAVOL [Concomitant]
     Active Substance: DIMENHYDRINATE
     Indication: Premedication
     Dosage: 50 MG
     Route: 048
  23. HYDROCORTISONE [Concomitant]
     Active Substance: HYDROCORTISONE
     Indication: Premedication
     Dosage: 100 MG
     Route: 042
  24. LEFLUNOMIDE [Concomitant]
     Active Substance: LEFLUNOMIDE
     Dosage: 20 MG, DAILY
     Route: 048
     Dates: start: 202109
  25. PREDNISONE [Concomitant]
     Active Substance: PREDNISONE
     Dosage: 7 MG, DAILY
     Route: 048
     Dates: start: 2018
  26. PANTOPRAZOLE SODIUM [Concomitant]
     Active Substance: PANTOPRAZOLE SODIUM
     Dosage: 40 MG
  27. PERINDOPRIL [Concomitant]
     Active Substance: PERINDOPRIL
     Dosage: 8 MG, DAILY
  28. SYNTHROID [Concomitant]
     Active Substance: LEVOTHYROXINE SODIUM
     Dosage: UNK
  29. TOCILIZUMAB [Concomitant]
     Active Substance: TOCILIZUMAB
     Dosage: 162 MG, WEEKLY
     Route: 058
     Dates: start: 201806
  30. DIMENHYDRINATE [Concomitant]
     Active Substance: DIMENHYDRINATE
     Indication: Premedication
     Dosage: 50 MG
     Route: 048
     Dates: start: 20230127
  31. DIPHENHYDRAMINE [Concomitant]
     Active Substance: DIPHENHYDRAMINE
     Indication: Premedication
     Dosage: 50 MG
     Route: 048
     Dates: start: 20230127

REACTIONS (24)
  - Abortion spontaneous [Recovered/Resolved]
  - Off label use [Unknown]
  - Off label use [Unknown]
  - Maternal exposure during pregnancy [Not Recovered/Not Resolved]
  - Intentional product use issue [Unknown]
  - Inappropriate schedule of product administration [Unknown]
  - Alopecia [Not Recovered/Not Resolved]
  - Insomnia [Unknown]
  - Increased appetite [Unknown]
  - COVID-19 [Recovered/Resolved]
  - Weight decreased [Unknown]
  - Paraesthesia [Unknown]
  - Rash pruritic [Not Recovered/Not Resolved]
  - Pruritus [Recovering/Resolving]
  - Condition aggravated [Recovering/Resolving]
  - Chest pain [Unknown]
  - Condition aggravated [Unknown]
  - Pyrexia [Recovered/Resolved]
  - Pyrexia [Recovered/Resolved]
  - Headache [Not Recovered/Not Resolved]
  - Oropharyngeal pain [Not Recovered/Not Resolved]
  - Nasal congestion [Recovered/Resolved]
  - Cough [Recovered/Resolved]
  - Blood pressure increased [Unknown]

NARRATIVE: CASE EVENT DATE: 20220101
